FAERS Safety Report 6107265-9 (Version None)
Quarter: 2009Q1

REPORT INFORMATION
  Report Type: 
  Country: None (occurrence: None)
  Receive Date: 20090309
  Receipt Date: 20090304
  Transmission Date: 20090719
  Serious: Yes (Hospitalization)
  Sender: FDA-Public Use
  Company Number: US-BRISTOL-MYERS SQUIBB COMPANY-14530604

PATIENT
  Age: 67 Year
  Sex: Male
  Weight: 110 kg

DRUGS (2)
  1. CISPLATIN [Suspect]
     Indication: HEAD AND NECK CANCER
     Dosage: START DATE: 22DEC08 ASSOCIATED: 12JAN09 100MG/M2 ON DAYS 1+21 OF RADIATION
     Route: 042
     Dates: start: 20090112, end: 20090112
  2. RADIATION THERAPY [Suspect]
     Indication: HEAD AND NECK CANCER
     Dosage: NO OF FRACTIONS:35 NO OF ELAPSED DAYS:44 STARTED 22DEC08.
     Dates: end: 20090203

REACTIONS (9)
  - BLOOD CREATININE [None]
  - DYSPHAGIA [None]
  - FATIGUE [None]
  - HAEMOGLOBIN DECREASED [None]
  - HYPERNATRAEMIA [None]
  - HYPOALBUMINAEMIA [None]
  - HYPOCALCAEMIA [None]
  - HYPOPHOSPHATAEMIA [None]
  - PNEUMONIA [None]
